FAERS Safety Report 8900584 (Version 1)
Quarter: 2012Q4

REPORT INFORMATION
  Report Type: 
  Country: ES (occurrence: ES)
  Receive Date: 20121109
  Receipt Date: 20121109
  Transmission Date: 20130627
  Serious: Yes (Hospitalization)
  Sender: FDA-Public Use
  Company Number: ES-ELI_LILLY_AND_COMPANY-ES201210009509

PATIENT
  Age: 70 Year
  Sex: Female
  Weight: 59 kg

DRUGS (6)
  1. FORSTEO [Suspect]
     Indication: OSTEOPOROSIS
     Dosage: 20 ug, qd
     Route: 058
     Dates: start: 20120119
  2. CLEXANE [Concomitant]
     Indication: THROMBOSIS PROPHYLAXIS
     Dosage: 40 mg, bid
     Route: 058
     Dates: start: 20121001
  3. MANIDON [Concomitant]
     Indication: CARDIAC DISORDER
     Dosage: 120 mg, qd
     Route: 048
     Dates: start: 2002
  4. LORMETAZEPAM [Concomitant]
     Indication: SLEEP DISORDER
     Dosage: 2 mg, qd
     Route: 048
     Dates: start: 2006
  5. CONDRO SAN [Concomitant]
     Indication: OSTEOPOROSIS
     Dosage: 1 DF, qd
     Route: 048
     Dates: start: 2006
  6. IDEOS [Concomitant]
     Indication: OSTEOPOROSIS
     Dosage: UNK UNK, qd
     Route: 048
     Dates: start: 2006

REACTIONS (1)
  - Malignant melanoma [Recovered/Resolved]
